FAERS Safety Report 8332115-X (Version None)
Quarter: 2012Q2

REPORT INFORMATION
  Report Type: 
  Country: None (occurrence: None)
  Receive Date: 20120502
  Receipt Date: 20120423
  Transmission Date: 20120825
  Serious: Yes (Disabling)
  Sender: FDA-Public Use
  Company Number: US-ALLERGAN-1205776US

PATIENT
  Age: 53 Year
  Sex: Female

DRUGS (1)
  1. BOTULINUM TOXIN TYPE A [Suspect]
     Indication: MIGRAINE
     Dosage: UNK
     Route: 030
     Dates: start: 20120405, end: 20120405

REACTIONS (5)
  - VISUAL ACUITY REDUCED [None]
  - EYELID PTOSIS [None]
  - CONJUNCTIVITIS INFECTIVE [None]
  - INJECTION SITE PAIN [None]
  - HEADACHE [None]
